FAERS Safety Report 6735163-6 (Version None)
Quarter: 2010Q2

REPORT INFORMATION
  Report Type: 
  Country: None (occurrence: None)
  Receive Date: 20100519
  Receipt Date: 20100519
  Transmission Date: 20101027
  Serious: No
  Sender: FDA-Public Use
  Company Number: None

PATIENT
  Age: 45 Year
  Sex: Female
  Weight: 67.1324 kg

DRUGS (2)
  1. LEVAQUIN [Suspect]
     Indication: BRONCHITIS
     Dosage: 500 MG ONE P/O Q DAILY
     Route: 048
     Dates: start: 20100424
  2. LEVAQUIN [Suspect]
     Indication: BRONCHITIS
     Dosage: 500 MG ONE P/O Q DAILY
     Route: 048
     Dates: start: 20100503

REACTIONS (1)
  - OEDEMA PERIPHERAL [None]
